FAERS Safety Report 24591836 (Version 1)
Quarter: 2024Q4

REPORT INFORMATION
  Report Type: Report from Study
  Country: CA (occurrence: CA)
  Receive Date: 20241108
  Receipt Date: 20241108
  Transmission Date: 20250115
  Serious: Yes (Hospitalization, Other)
  Sender: JOHNSON AND JOHNSON
  Company Number: CA-JNJFOC-20240878816

PATIENT
  Age: 78 Year
  Sex: Male
  Weight: 80 kg

DRUGS (3)
  1. STELARA [Suspect]
     Active Substance: USTEKINUMAB
     Indication: Crohn^s disease
     Route: 058
     Dates: start: 20220310
  2. STELARA [Suspect]
     Active Substance: USTEKINUMAB
     Route: 058
  3. STELARA [Suspect]
     Active Substance: USTEKINUMAB
     Route: 058

REACTIONS (5)
  - Clostridium difficile infection [Recovered/Resolved]
  - Intestinal obstruction [Recovered/Resolved]
  - Diarrhoea [Unknown]
  - Frequent bowel movements [Unknown]
  - Inflammation [Unknown]

NARRATIVE: CASE EVENT DATE: 20240801
